FAERS Safety Report 12915447 (Version 2)
Quarter: 2017Q1

REPORT INFORMATION
  Report Type: Spontaneous
  Country: US (occurrence: US)
  Receive Date: 20161106
  Receipt Date: 20170216
  Transmission Date: 20170428
  Serious: No
  Sender: FDA-Public Use
  Company Number: US-RELYPSA-RLY2016003023

PATIENT
  Sex: Male

DRUGS (22)
  1. SPS [Concomitant]
     Active Substance: SODIUM POLYSTYRENE SULFONATE
     Dosage: 50 MG, UNKNOWN
  2. VELTASSA [Suspect]
     Active Substance: PATIROMER
     Indication: HYPERKALAEMIA
     Dosage: 8.4 G, QD
     Route: 048
     Dates: start: 20160930
  3. GABAPENTIN. [Concomitant]
     Active Substance: GABAPENTIN
     Dosage: 300 MG, UNKNOWN
  4. ALBUTEROL. [Concomitant]
     Active Substance: ALBUTEROL
  5. ASPIRIN. [Concomitant]
     Active Substance: ASPIRIN
  6. SYNTHROID [Concomitant]
     Active Substance: LEVOTHYROXINE SODIUM
  7. AMLODIPINE [Concomitant]
     Active Substance: AMLODIPINE BESYLATE
     Dosage: 5 MG, UNKNOWN
  8. CRESTOR [Concomitant]
     Active Substance: ROSUVASTATIN CALCIUM
     Dosage: 40 MG, UNKNOWN
  9. LOVAZA [Concomitant]
     Active Substance: OMEGA-3-ACID ETHYL ESTERS
  10. CIMETIDINE [Concomitant]
     Active Substance: CIMETIDINE
     Dosage: 150 MG, UNKNOWN
  11. FLOMAX [Concomitant]
     Active Substance: TAMSULOSIN HYDROCHLORIDE
  12. ARICEPT [Concomitant]
     Active Substance: DONEPEZIL HYDROCHLORIDE
  13. FUROSEMIDE. [Concomitant]
     Active Substance: FUROSEMIDE
     Dosage: 20 MG, UNKNOWN
  14. RANITIDINE. [Concomitant]
     Active Substance: RANITIDINE
  15. FOLIC ACID. [Concomitant]
     Active Substance: FOLIC ACID
  16. GLIPIZIDE. [Concomitant]
     Active Substance: GLIPIZIDE
     Dosage: UNK, WITH LUNCH AND DINNER
  17. BENICAR [Concomitant]
     Active Substance: OLMESARTAN MEDOXOMIL
     Dosage: 20 MG, UNKNOWN
  18. NORVASC [Concomitant]
     Active Substance: AMLODIPINE BESYLATE
  19. INCRUSE ELLIPTA [Concomitant]
     Active Substance: UMECLIDINIUM BROMIDE
  20. PLAVIX [Concomitant]
     Active Substance: CLOPIDOGREL BISULFATE
  21. ATENOLOL. [Concomitant]
     Active Substance: ATENOLOL
     Dosage: 50 MG, UNKNOWN
  22. NATEGLINIDE. [Concomitant]
     Active Substance: NATEGLINIDE
     Dosage: 120 MG, UNKNOWN

REACTIONS (3)
  - Blood glucose abnormal [Not Recovered/Not Resolved]
  - Constipation [Not Recovered/Not Resolved]
  - Muscle spasms [Unknown]

NARRATIVE: CASE EVENT DATE: 2016
